FAERS Safety Report 5571803-5 (Version None)
Quarter: 2007Q4

REPORT INFORMATION
  Report Type: 
  Country: None (occurrence: None)
  Receive Date: 20071221
  Receipt Date: 20071210
  Transmission Date: 20080405
  Serious: Yes (Hospitalization)
  Sender: FDA-Public Use
  Company Number: B0500419A

PATIENT
  Age: 66 Year
  Sex: Female

DRUGS (2)
  1. ZOPHREN [Suspect]
     Indication: PREMEDICATION
     Route: 042
     Dates: start: 20070503, end: 20070503
  2. ELOXATIN [Suspect]
     Indication: COLON CANCER METASTATIC
     Dosage: 85.5MG CYCLIC
     Route: 042
     Dates: start: 20070503, end: 20070503

REACTIONS (7)
  - ABDOMINAL PAIN [None]
  - ERYTHEMA [None]
  - HYPERHIDROSIS [None]
  - HYPOTENSION [None]
  - MALAISE [None]
  - PALLOR [None]
  - VOMITING [None]
